FAERS Safety Report 15987894 (Version 1)
Quarter: 2019Q1

REPORT INFORMATION
  Report Type: Spontaneous
  Country: GR (occurrence: GR)
  Receive Date: 20190220
  Receipt Date: 20190220
  Transmission Date: 20190418
  Serious: Yes (Other)
  Sender: FDA-Public Use
  Company Number: GR-ELI_LILLY_AND_COMPANY-GR201902007080

PATIENT
  Age: 56 Year
  Sex: Female

DRUGS (2)
  1. CARBOPLAN [Suspect]
     Active Substance: CARBOPLATIN
     Indication: BREAST CANCER
     Dosage: 350 MG, UNKNOWN
     Route: 042
     Dates: start: 20130829
  2. GEMCITABINE HYDROCHLORIDE. [Suspect]
     Active Substance: GEMCITABINE HYDROCHLORIDE
     Indication: BREAST CANCER
     Dosage: 1350 MG, UNKNOWN
     Route: 042
     Dates: start: 20130829

REACTIONS (6)
  - Dermatitis allergic [Recovered/Resolved]
  - Swollen tongue [Recovered/Resolved]
  - Off label use [Unknown]
  - Wheezing [Recovered/Resolved]
  - Swelling face [Recovered/Resolved]
  - Dyspnoea [Recovered/Resolved]

NARRATIVE: CASE EVENT DATE: 20130829
